FAERS Safety Report 24462582 (Version 1)
Quarter: 2024Q4

REPORT INFORMATION
  Report Type: Spontaneous
  Country: CN (occurrence: CN)
  Receive Date: 20241018
  Receipt Date: 20241018
  Transmission Date: 20250114
  Serious: Yes (Hospitalization)
  Sender: RANBAXY
  Company Number: CN-SUN PHARMACEUTICAL INDUSTRIES LTD-2024R1-473652

PATIENT
  Age: 47 Year
  Sex: Female

DRUGS (2)
  1. TEMOZOLOMIDE [Suspect]
     Active Substance: TEMOZOLOMIDE
     Indication: Glioblastoma
     Dosage: 75 MILLIGRAM/SQ. METER, QD, DAYS 1-5 EVERY 28 DAYS
     Route: 065
     Dates: start: 20200720
  2. BEVACIZUMAB [Suspect]
     Active Substance: BEVACIZUMAB
     Indication: Glioblastoma
     Dosage: 300 MILLIGRAM, 2/WEEK
     Route: 065

REACTIONS (2)
  - Hypertension [Recovering/Resolving]
  - Hepatic function abnormal [Recovering/Resolving]
